FAERS Safety Report 21964016 (Version 1)
Quarter: 2023Q1

REPORT INFORMATION
  Report Type: Spontaneous
  Country: US (occurrence: None)
  Receive Date: 20230206
  Receipt Date: 20230206
  Transmission Date: 20230417
  Serious: Yes (Hospitalization)
  Sender: FDA-Public Use
  Company Number: None

PATIENT
  Sex: Male

DRUGS (1)
  1. CABOTEGRAVIR [Suspect]
     Active Substance: CABOTEGRAVIR
     Indication: Prophylaxis against HIV infection
     Dosage: OTHER FREQUENCY : EVERY2MONTHS;?
     Route: 030
     Dates: start: 20220824

REACTIONS (5)
  - Back pain [None]
  - Abdominal pain [None]
  - Hepatic enzyme increased [None]
  - Lymphadenopathy [None]
  - Aortic disorder [None]
